FAERS Safety Report 20668457 (Version 1)
Quarter: 2022Q2

REPORT INFORMATION
  Report Type: Spontaneous
  Country: US (occurrence: US)
  Receive Date: 20220404
  Receipt Date: 20220404
  Transmission Date: 20220720
  Serious: No
  Sender: FDA-Public Use
  Company Number: US-PFIZER INC-2021642322

PATIENT
  Age: 55 Year
  Sex: Female
  Weight: 129.73 kg

DRUGS (1)
  1. RELPAX [Suspect]
     Active Substance: ELETRIPTAN HYDROBROMIDE
     Indication: Migraine
     Dosage: 40 MG, 2X/DAY 1 TABLET AS NEEDED, IF SHE NEEDS MORE SHE CAN TAKE NEEDED)

REACTIONS (8)
  - Weight decreased [Unknown]
  - Arthritis [Unknown]
  - Mobility decreased [Unknown]
  - Crying [Unknown]
  - Malaise [Unknown]
  - Illness [Unknown]
  - Headache [Unknown]
  - Off label use [Unknown]
